FAERS Safety Report 4396678-1 (Version None)
Quarter: 2004Q3

REPORT INFORMATION
  Report Type: 
  Country: None (occurrence: None)
  Receive Date: 20040709
  Receipt Date: 20040625
  Transmission Date: 20050211
  Serious: Yes (Hospitalization)
  Sender: FDA-Public Use
  Company Number: 2004IM000626

PATIENT
  Age: 62 Year
  Sex: Male

DRUGS (13)
  1. ADVAFERON (A643_INTERFERON ALFACON-1) [Suspect]
     Indication: HEPATITIS C
     Dosage: 18 MU; QD; SUBCUTANEOUS
     Route: 058
     Dates: start: 20030314, end: 20030404
  2. MENESIT [Concomitant]
  3. BIPERIDIN HYDROCHLORIDE [Concomitant]
  4. DOXAZOSIN MESYLATE [Concomitant]
  5. URSODEOXYCHOLIC ACID [Concomitant]
  6. CALCIUM POLYSTYRENE SULFONATE [Concomitant]
  7. ALLOPURINOL [Concomitant]
  8. ASPIRIN [Concomitant]
  9. AZOSEMIDE [Concomitant]
  10. SODIUM BICARBONATE [Concomitant]
  11. NIFEDIPINE [Concomitant]
  12. GLICLAZIDE [Concomitant]
  13. AROTINOLOL HYDROCHLORIDE [Concomitant]

REACTIONS (3)
  - BLOOD PRESSURE DECREASED [None]
  - NEUROLEPTIC MALIGNANT SYNDROME [None]
  - PARKINSON'S DISEASE [None]
